FAERS Safety Report 6781640-1 (Version None)
Quarter: 2010Q2

REPORT INFORMATION
  Report Type: 
  Country: None (occurrence: None)
  Receive Date: 20100621
  Receipt Date: 20100610
  Transmission Date: 20101027
  Serious: Yes (Other)
  Sender: FDA-Public Use
  Company Number: CA-BAYER-201016073NA

PATIENT
  Sex: Male

DRUGS (6)
  1. LEVITRA [Suspect]
     Indication: DRUG USE FOR UNKNOWN INDICATION
     Route: 048
  2. ASPIRIN [Concomitant]
  3. SIMVASTATIN [Concomitant]
     Route: 065
  4. AVALIDE [Concomitant]
     Dosage: 300.12.5MG
     Route: 065
  5. GLYBURIDE [Concomitant]
     Route: 065
  6. METFORMIN [Concomitant]
     Route: 065

REACTIONS (3)
  - EYE DISCHARGE [None]
  - RETINAL VASCULAR THROMBOSIS [None]
  - VISUAL IMPAIRMENT [None]
